FAERS Safety Report 6773673-6 (Version None)
Quarter: 2010Q2

REPORT INFORMATION
  Report Type: 
  Country: None (occurrence: None)
  Receive Date: 20100617
  Receipt Date: 20100614
  Transmission Date: 20101027
  Serious: Yes (Death, Hospitalization, Other)
  Sender: FDA-Public Use
  Company Number: US-BIOGENIDEC-2009BI032732

PATIENT
  Age: 42 Year
  Sex: Male
  Weight: 74 kg

DRUGS (1)
  1. TYSABRI [Suspect]
     Indication: MULTIPLE SCLEROSIS
     Route: 042
     Dates: start: 20071129, end: 20091006

REACTIONS (5)
  - DEATH [None]
  - HEADACHE [None]
  - IMMUNE RECONSTITUTION SYNDROME [None]
  - PANCYTOPENIA [None]
  - PROGRESSIVE MULTIFOCAL LEUKOENCEPHALOPATHY [None]
